FAERS Safety Report 7228193-1 (Version None)
Quarter: 2011Q1

REPORT INFORMATION
  Report Type: 
  Country: None (occurrence: None)
  Receive Date: 20110106
  Receipt Date: 20101221
  Transmission Date: 20110831
  Serious: Yes (Other)
  Sender: FDA-Public Use
  Company Number: AUR-APL-2010-03116

PATIENT
  Age: 73 Year
  Sex: Male
  Weight: 77.9 kg

DRUGS (6)
  1. ACC-001 (ACC-001, QS-121) [Suspect]
     Indication: DEMENTIA ALZHEIMER'S TYPE
     Dosage: INTRAMUSCULAR
     Route: 030
     Dates: start: 20091214, end: 20091214
  2. ACC-001 [Suspect]
     Indication: DEMENTIA ALZHEIMER'S TYPE
     Dosage: INTRAMUSCULAR
     Route: 030
     Dates: start: 20100616, end: 20100616
  3. RISPERIDONE [Concomitant]
  4. REMINYL [Concomitant]
  5. TERBINAFINE HCL [Suspect]
     Indication: FUNGAL INFECTION
     Dosage: 250MG-DAILY-ORAL
     Route: 048
     Dates: start: 20100801, end: 20100908
  6. RAMIPRIL [Concomitant]

REACTIONS (8)
  - RASH [None]
  - CYANOSIS [None]
  - RAYNAUD'S PHENOMENON [None]
  - DRUG HYPERSENSITIVITY [None]
  - SKIN FISSURES [None]
  - SKIN EXFOLIATION [None]
  - SKIN HAEMORRHAGE [None]
  - PETECHIAE [None]
